FAERS Safety Report 13537424 (Version 4)
Quarter: 2018Q3

REPORT INFORMATION
  Report Type: Spontaneous
  Country: GR (occurrence: GR)
  Receive Date: 20170511
  Receipt Date: 20180815
  Transmission Date: 20181010
  Serious: Yes (Hospitalization, Other)
  Sender: FDA-Public Use
  Company Number: GR-B.I. PHARMACEUTICALS,INC./RIDGEFIELD-2017-BI-026688

PATIENT
  Age: 54 Year
  Sex: Female

DRUGS (3)
  1. MICARDIS [Suspect]
     Active Substance: TELMISARTAN
     Indication: HYPERTENSION
     Route: 065
  2. METOPROLOL. [Suspect]
     Active Substance: METOPROLOL
     Indication: HYPERTENSION
     Route: 065
  3. FELODIPINE. [Suspect]
     Active Substance: FELODIPINE
     Indication: HYPERTENSION
     Route: 065

REACTIONS (8)
  - Adrenal mass [Unknown]
  - Drug ineffective [Recovered/Resolved]
  - Metabolic alkalosis [Unknown]
  - Blood albumin abnormal [Unknown]
  - Hypokalaemia [Unknown]
  - Blood pressure increased [Unknown]
  - Muscular weakness [Unknown]
  - Hyperaldosteronism [Unknown]
